FAERS Safety Report 5487648-0 (Version None)
Quarter: 2007Q4

REPORT INFORMATION
  Report Type: 
  Country: None (occurrence: None)
  Receive Date: 20071012
  Receipt Date: 20071012
  Transmission Date: 20080405
  Serious: Yes (Other)
  Sender: FDA-Public Use
  Company Number: None

PATIENT
  Age: 20 Year
  Sex: Male

DRUGS (2)
  1. GEODON [Suspect]
     Indication: BIPOLAR II DISORDER
     Dosage: 20MG BID PO
     Route: 048
     Dates: start: 20070924, end: 20070925
  2. GEODON [Suspect]
     Dosage: 80MG HS PO
     Route: 048

REACTIONS (1)
  - DYSTONIA [None]
